FAERS Safety Report 6871987-2 (Version None)
Quarter: 2010Q3

REPORT INFORMATION
  Report Type: 
  Country: None (occurrence: None)
  Receive Date: 20100723
  Receipt Date: 20100712
  Transmission Date: 20110219
  Serious: Yes (Other)
  Sender: FDA-Public Use
  Company Number: GB-PFIZER INC-2010086875

PATIENT
  Age: 58 Year
  Sex: Female

DRUGS (3)
  1. LYRICA [Suspect]
     Indication: NEURALGIA
     Dosage: 375 MG, 1X/DAY
  2. OXYCONTIN [Concomitant]
     Dosage: 150 MG, 1X/DAY
  3. TRAZODONE [Concomitant]
     Indication: DEPRESSION
     Dosage: UNK

REACTIONS (6)
  - APHASIA [None]
  - CLUMSINESS [None]
  - DYSKINESIA [None]
  - MEMORY IMPAIRMENT [None]
  - MENTAL IMPAIRMENT [None]
  - SPEECH DISORDER [None]
